FAERS Safety Report 6783833-6 (Version None)
Quarter: 2010Q2

REPORT INFORMATION
  Report Type: 
  Country: None (occurrence: None)
  Receive Date: 20100622
  Receipt Date: 20100608
  Transmission Date: 20101027
  Serious: Yes (Other)
  Sender: FDA-Public Use
  Company Number: US-RB-011886-10

PATIENT
  Sex: Male

DRUGS (1)
  1. DELSYM [Suspect]
     Dosage: DELSYM 3 OZ USED

REACTIONS (2)
  - DRUG ABUSE [None]
  - HALLUCINATION [None]
